FAERS Safety Report 4831015-7 (Version None)
Quarter: 2005Q4

REPORT INFORMATION
  Report Type: 
  Country: None (occurrence: None)
  Receive Date: 20051114
  Receipt Date: 20051031
  Transmission Date: 20060501
  Serious: Yes (Hospitalization)
  Sender: FDA-Public Use
  Company Number: DE_051017263

PATIENT
  Age: 62 Year
  Sex: Male

DRUGS (2)
  1. CIALIS [Suspect]
     Indication: ERECTILE DYSFUNCTION
     Dosage: 10 MG AS NEEDED
     Dates: start: 20030801, end: 20050101
  2. SPASMEX (TROSPIUM CHLORIDE) [Concomitant]

REACTIONS (8)
  - ARTHROPOD BITE [None]
  - BLOOD CHOLESTEROL INCREASED [None]
  - CEREBELLAR INFARCTION [None]
  - COORDINATION ABNORMAL [None]
  - EMBOLISM [None]
  - GAMMA-GLUTAMYLTRANSFERASE INCREASED [None]
  - HEADACHE [None]
  - VOMITING [None]
